FAERS Safety Report 13995572 (Version 2)
Quarter: 2018Q3

REPORT INFORMATION
  Report Type: Spontaneous
  Country: US (occurrence: US)
  Receive Date: 20170921
  Receipt Date: 20180926
  Transmission Date: 20181010
  Serious: Yes (Other)
  Sender: FDA-Public Use
  Company Number: US-PFIZER INC-2017404846

PATIENT
  Age: 89 Year
  Sex: Female

DRUGS (5)
  1. HYDROCODONE [Suspect]
     Active Substance: HYDROCODONE
     Indication: PAIN
     Dosage: UNK, AS NEEDED
     Dates: start: 1972
  2. DARVOCET [Suspect]
     Active Substance: ACETAMINOPHEN\PROPOXYPHENE HYDROCHLORIDE
     Indication: PAIN
     Dosage: UNK, AS NEEDED
     Dates: start: 1972
  3. MEPERIDINE HCL [Suspect]
     Active Substance: MEPERIDINE HYDROCHLORIDE
     Indication: PAIN
     Dosage: UNK, AS NEEDED
     Dates: start: 1972
  4. CODEINE [Suspect]
     Active Substance: CODEINE
     Indication: PAIN
     Dosage: UNK, AS NEEDED
     Dates: start: 1972
  5. IODINE. [Suspect]
     Active Substance: IODINE
     Indication: PAIN
     Dosage: UNK, AS NEEDED
     Dates: start: 1972

REACTIONS (3)
  - Macular degeneration [Recovering/Resolving]
  - Drug hypersensitivity [Recovered/Resolved]
  - Urticaria [Recovered/Resolved]
